FAERS Safety Report 16662695 (Version 1)
Quarter: 2019Q3

REPORT INFORMATION
  Report Type: Report from Study
  Country: US (occurrence: US)
  Receive Date: 20190802
  Receipt Date: 20190802
  Transmission Date: 20191004
  Serious: No
  Sender: FDA-Public Use
  Company Number: US-EXELIXIS-CABO-18017489

PATIENT
  Sex: Female

DRUGS (23)
  1. CYCLOBENZAPRINE. [Concomitant]
     Active Substance: CYCLOBENZAPRINE
  2. HYDRALAZINE [Concomitant]
     Active Substance: HYDRALAZINE HYDROCHLORIDE
  3. ZOFRAN [Concomitant]
     Active Substance: ONDANSETRON HYDROCHLORIDE
  4. ATHLETES FOOT [Concomitant]
  5. SOLOSTAR [Concomitant]
     Active Substance: DEVICE
  6. VITAMIN B12 [Concomitant]
     Active Substance: CYANOCOBALAMIN
  7. VITAMIN D NOS [Concomitant]
     Active Substance: VITAMIN D NOS
  8. LEVOTHYROXINE. [Concomitant]
     Active Substance: LEVOTHYROXINE
  9. SOLARCAINE COOL ALOE [Concomitant]
     Active Substance: LIDOCAINE HYDROCHLORIDE
  10. TRADJENTA [Concomitant]
     Active Substance: LINAGLIPTIN
  11. TRIAMCINOLONE ACETONIDE. [Concomitant]
     Active Substance: TRIAMCINOLONE ACETONIDE
  12. AMLODIPINE [Concomitant]
     Active Substance: AMLODIPINE BESYLATE
  13. LANTUS [Concomitant]
     Active Substance: INSULIN GLARGINE
  14. MAGNESIUM [Concomitant]
     Active Substance: MAGNESIUM
  15. OMEPRAZOLE. [Concomitant]
     Active Substance: OMEPRAZOLE
  16. FLUTICASONE PROPIONATE. [Concomitant]
     Active Substance: FLUTICASONE PROPIONATE
  17. CLOBETASOL PROPIONATE. [Concomitant]
     Active Substance: CLOBETASOL PROPIONATE
  18. LORATADINE. [Concomitant]
     Active Substance: LORATADINE
  19. CABOMETYX [Suspect]
     Active Substance: CABOZANTINIB S-MALATE
     Indication: RENAL CANCER
     Dosage: 40 MG, QD
     Route: 048
  20. CABOMETYX [Suspect]
     Active Substance: CABOZANTINIB S-MALATE
     Dosage: 20 MG, QD
     Route: 048
  21. LOVASTATIN. [Concomitant]
     Active Substance: LOVASTATIN
  22. METOPROLOL. [Concomitant]
     Active Substance: METOPROLOL
  23. LASIX [Concomitant]
     Active Substance: FUROSEMIDE

REACTIONS (1)
  - Alopecia [Unknown]
